FAERS Safety Report 4529925-3 (Version None)
Quarter: 2004Q4

REPORT INFORMATION
  Report Type: 
  Country: None (occurrence: None)
  Receive Date: 20041215
  Receipt Date: 20041215
  Transmission Date: 20050328
  Serious: Yes (Life-Threatening, Hospitalization)
  Sender: FDA-Public Use
  Company Number: None

PATIENT
  Age: 72 Year
  Sex: Female
  Weight: 84 kg

DRUGS (11)
  1. TEQUIN [Suspect]
     Indication: INFECTION
     Dosage: DAILY PO
     Route: 048
     Dates: start: 20041127, end: 20041128
  2. TEQUIN [Suspect]
     Indication: SKIN ULCER
     Dosage: DAILY PO
     Route: 048
     Dates: start: 20041127, end: 20041128
  3. GLYBURIDE [Concomitant]
  4. FUROSEMIDE [Concomitant]
  5. ASPIRIN [Concomitant]
  6. CELECOXIB [Concomitant]
  7. LABETALOL [Concomitant]
  8. WARFARIN [Concomitant]
  9. AMLODIPINE [Concomitant]
  10. ENALAPRIL [Concomitant]
  11. MONTELUKAST [Concomitant]

REACTIONS (2)
  - COMA [None]
  - HYPOGLYCAEMIA [None]
